FAERS Safety Report 21679155 (Version 2)
Quarter: 2023Q2

REPORT INFORMATION
  Report Type: Report from Study
  Country: US (occurrence: US)
  Receive Date: 20221204
  Receipt Date: 20230522
  Transmission Date: 20230721
  Serious: Yes (Hospitalization, Other)
  Sender: FDA-Public Use
  Company Number: US-ABBVIE-4187087

PATIENT
  Sex: Male

DRUGS (2)
  1. HUMIRA [Suspect]
     Active Substance: ADALIMUMAB
     Indication: Psoriatic arthropathy
     Route: 058
  2. HUMIRA [Suspect]
     Active Substance: ADALIMUMAB
     Route: 058

REACTIONS (12)
  - Haematochezia [Unknown]
  - Sepsis [Unknown]
  - Dehydration [Unknown]
  - Red blood cell count abnormal [Unknown]
  - Ulcer [Unknown]
  - Walking aid user [Unknown]
  - Anaemia [Unknown]
  - Acute kidney injury [Unknown]
  - Hypoaesthesia [Unknown]
  - Skin disorder [Recovered/Resolved]
  - Papule [Unknown]
  - Immunodeficiency [Unknown]

NARRATIVE: CASE EVENT DATE: 20220101
